FAERS Safety Report 6373429-2 (Version None)
Quarter: 2009Q3

REPORT INFORMATION
  Report Type: 
  Country: None (occurrence: None)
  Receive Date: 20090924
  Receipt Date: 20090324
  Transmission Date: 20100115
  Serious: No
  Sender: FDA-Public Use
  Company Number: US-ASTRAZENECA-2009UW07484

PATIENT
  Age: 58 Year
  Sex: Male

DRUGS (2)
  1. SEROQUEL [Suspect]
     Route: 048
  2. AMITRIPTYLINE [Concomitant]
     Route: 048

REACTIONS (2)
  - DECREASED APPETITE [None]
  - WEIGHT DECREASED [None]
